FAERS Safety Report 8355296-0 (Version None)
Quarter: 2012Q2

REPORT INFORMATION
  Report Type: 
  Country: None (occurrence: None)
  Receive Date: 20120511
  Receipt Date: 20110322
  Transmission Date: 20120825
  Serious: No
  Sender: FDA-Public Use
  Company Number: US-TEVA-2011001327

PATIENT
  Sex: Male
  Weight: 82.628 kg

DRUGS (3)
  1. ZOCOR [Concomitant]
     Dates: start: 20080101
  2. CYMBALTA [Concomitant]
  3. NUVIGIL [Suspect]
     Indication: DEPRESSION
     Dosage: 250 MILLIGRAM;
     Route: 048
     Dates: start: 20100801

REACTIONS (2)
  - INTENTIONAL DRUG MISUSE [None]
  - HEADACHE [None]
